FAERS Safety Report 20821788 (Version 4)
Quarter: 2022Q3

REPORT INFORMATION
  Report Type: Spontaneous
  Country: CA (occurrence: CA)
  Receive Date: 20220512
  Receipt Date: 20220921
  Transmission Date: 20221026
  Serious: Yes (Other)
  Sender: FDA-Public Use
  Company Number: CA-PFIZER INC-202200474427

PATIENT
  Age: 65 Year
  Sex: Female
  Weight: 81 kg

DRUGS (8)
  1. RUXIENCE [Suspect]
     Active Substance: RITUXIMAB-PVVR
     Indication: Immunoglobulin G4 related disease
     Dosage: 1000 MG EVERY 2 WEEKS, DAY 1 AND DAY 15
     Route: 042
     Dates: start: 20220504, end: 20220517
  2. RUXIENCE [Suspect]
     Active Substance: RITUXIMAB-PVVR
     Dosage: 1000 MG DAY 1 AND DAY 15
     Route: 042
     Dates: start: 20220517
  3. ACETAMINOPHEN [Concomitant]
     Active Substance: ACETAMINOPHEN
     Dosage: 650 MG,  PO
  4. BENADRYL [Concomitant]
     Active Substance: DIPHENHYDRAMINE HYDROCHLORIDE
     Dosage: 50 MG
     Route: 042
  5. BISOPROLOL [Concomitant]
     Active Substance: BISOPROLOL
     Dosage: 1 DF, DOSAGE NOT AVAILABLE
     Route: 065
  6. METHOTREXATE [Concomitant]
     Active Substance: METHOTREXATE
     Dosage: 15 MG, 1X/DAY
     Route: 048
     Dates: start: 2020
  7. TYLENOL [Concomitant]
     Active Substance: ACETAMINOPHEN
     Indication: Premedication
     Dosage: UNK
     Dates: start: 20220517, end: 20220517
  8. PREDNISONE [Concomitant]
     Active Substance: PREDNISONE
     Dosage: 20 MG, FREQUENCY NOT AVAILABLE
     Route: 065

REACTIONS (12)
  - Vein rupture [Unknown]
  - Off label use [Unknown]
  - Heart rate increased [Unknown]
  - Feeling hot [Recovered/Resolved]
  - Headache [Recovered/Resolved]
  - Peripheral vein occlusion [Unknown]
  - Oropharyngeal pain [Unknown]
  - Dysphonia [Unknown]
  - Infusion site erythema [Unknown]
  - Back pain [Unknown]
  - Dry mouth [Unknown]
  - Headache [Recovered/Resolved]

NARRATIVE: CASE EVENT DATE: 20220504
